FAERS Safety Report 9383526 (Version 1)
Quarter: 2013Q3

REPORT INFORMATION
  Report Type: Spontaneous
  Country: US (occurrence: US)
  Receive Date: 20130704
  Receipt Date: 20130704
  Transmission Date: 20140515
  Serious: No
  Sender: FDA-Public Use
  Company Number: US-PFIZER INC-2013194674

PATIENT
  Age: 72 Year
  Sex: Female
  Weight: 77.1 kg

DRUGS (4)
  1. GLIBENCLAMIDE [Suspect]
     Indication: DIABETES MELLITUS
     Dosage: UNK
  2. RETIN A [Concomitant]
     Dosage: UNK
  3. LEVOTHYROXINE [Concomitant]
     Dosage: 0.125 MG, 1X/DAY
     Dates: start: 2004
  4. CRESTOR [Concomitant]
     Dosage: 25 MG, 1X/DAY
     Dates: start: 2001

REACTIONS (1)
  - Hypoglycaemia [Unknown]
